FAERS Safety Report 17770163 (Version 1)
Quarter: 2020Q2

REPORT INFORMATION
  Report Type: Spontaneous
  Country: US (occurrence: US)
  Receive Date: 20200512
  Receipt Date: 20200512
  Transmission Date: 20200714
  Serious: Yes (Hospitalization)
  Sender: FDA-Public Use
  Company Number: None

PATIENT
  Age: 86 Year
  Sex: Female
  Weight: 90.7 kg

DRUGS (1)
  1. ARIMIDEX [Suspect]
     Active Substance: ANASTROZOLE
     Dates: end: 20200504

REACTIONS (6)
  - Erythema [None]
  - Synovial rupture [None]
  - Arthritis [None]
  - Osteoarthritis [None]
  - Arthralgia [None]
  - Joint warmth [None]

NARRATIVE: CASE EVENT DATE: 20200504
